FAERS Safety Report 24540557 (Version 3)
Quarter: 2024Q4

REPORT INFORMATION
  Report Type: Report from Study
  Country: US (occurrence: US)
  Receive Date: 20241023
  Receipt Date: 20241029
  Transmission Date: 20250114
  Serious: No
  Sender: BRISTOL-MYERS SQUIBB COMPANY
  Company Number: US-BRISTOL-MYERS SQUIBB COMPANY-2024-166915

PATIENT
  Age: 80 Year
  Sex: Female
  Weight: 73.48 kg

DRUGS (14)
  1. ELIQUIS [Suspect]
     Active Substance: APIXABAN
     Indication: Cerebrovascular accident prophylaxis
     Route: 048
  2. MULTIVITAMIN [ASCORBIC ACID;BIOTIN;CALCIUM;CHOLINE BITARTRATE;CHROMIUM [Concomitant]
     Indication: Product used for unknown indication
  3. VITAMIN B [Concomitant]
     Active Substance: VITAMIN B
     Indication: Product used for unknown indication
  4. POTASSIUM [Concomitant]
     Active Substance: POTASSIUM
     Indication: Product used for unknown indication
  5. CURCUMIN [Concomitant]
     Active Substance: CURCUMIN
     Indication: Product used for unknown indication
     Dosage: TURMERIC
  6. SPIRULINA [SPIRULINA PLATENSIS] [Concomitant]
     Indication: Product used for unknown indication
  7. BALANCE OF NATURE VEGGIES [Concomitant]
     Indication: Product used for unknown indication
  8. BLUE GREEN ALGAE [Concomitant]
     Indication: Product used for unknown indication
  9. B COMPLEX [AMINOBENZOIC ACID;BIOTIN;CALCIUM PANTOTHENATE;CHOLINE BITAR [Concomitant]
     Indication: Product used for unknown indication
  10. VITAMIN E [Concomitant]
     Active Substance: .ALPHA.-TOCOPHEROL
     Indication: Product used for unknown indication
  11. GARLIC [Concomitant]
     Active Substance: GARLIC
     Indication: Product used for unknown indication
  12. FLONASE [Concomitant]
     Active Substance: FLUTICASONE PROPIONATE
     Indication: Product used for unknown indication
  13. METOPROLOL [Concomitant]
     Active Substance: METOPROLOL
     Indication: Product used for unknown indication
  14. LEVOTHYROXINE [Concomitant]
     Active Substance: LEVOTHYROXINE
     Indication: Thyroid disorder

REACTIONS (23)
  - Pruritus [Unknown]
  - Urticaria [Unknown]
  - Eczema [Unknown]
  - Dry mouth [Unknown]
  - Hypersensitivity [Unknown]
  - Dizziness [Unknown]
  - Joint dislocation [Unknown]
  - Product dose omission in error [Unknown]
  - Fibromyalgia [Unknown]
  - Haemorrhage [Unknown]
  - Contusion [Unknown]
  - Tongue haemorrhage [Unknown]
  - Tongue biting [Unknown]
  - Tongue discolouration [Unknown]
  - Rash [Unknown]
  - Swelling [Unknown]
  - Product packaging issue [Unknown]
  - Product lot number issue [Unknown]
  - Product expiration date issue [Unknown]
  - Pain [Unknown]
  - Asthma [Unknown]
  - Quality of life decreased [Unknown]
  - Blister [Unknown]
